FAERS Safety Report 13944249 (Version 6)
Quarter: 2017Q4

REPORT INFORMATION
  Report Type: Spontaneous
  Country: JP (occurrence: JP)
  Receive Date: 20170907
  Receipt Date: 20171120
  Transmission Date: 20180320
  Serious: Yes (Hospitalization, Disabling, Other)
  Sender: FDA-Public Use
  Company Number: JP-ORION CORPORATION ORION PHARMA-ENT 2017-0143

PATIENT
  Age: 58 Year
  Sex: Female
  Weight: 42 kg

DRUGS (5)
  1. COMTAN [Suspect]
     Active Substance: ENTACAPONE
     Indication: PARKINSON^S DISEASE
     Route: 048
     Dates: start: 20150930, end: 20170821
  2. NEUPRO [Concomitant]
     Active Substance: ROTIGOTINE
     Route: 065
     Dates: start: 20170527
  3. SYMMETREL [Suspect]
     Active Substance: AMANTADINE HYDROCHLORIDE
     Indication: PARKINSON^S DISEASE
     Route: 048
  4. TRERIEF [Concomitant]
     Active Substance: ZONISAMIDE
     Route: 065
     Dates: start: 20160907, end: 20170821
  5. NEODOPASOL [Concomitant]
     Active Substance: BENSERAZIDE HYDROCHLORIDE\LEVODOPA
     Route: 065

REACTIONS (6)
  - Dehydration [Unknown]
  - Nephrogenic anaemia [Not Recovered/Not Resolved]
  - Gait disturbance [Recovering/Resolving]
  - Hallucination, visual [Recovered/Resolved]
  - Blood erythropoietin decreased [Unknown]
  - Tubulointerstitial nephritis [Recovering/Resolving]

NARRATIVE: CASE EVENT DATE: 20170814
